FAERS Safety Report 25285681 (Version 2)
Quarter: 2025Q3

REPORT INFORMATION
  Report Type: Spontaneous
  Country: US (occurrence: US)
  Receive Date: 20250509
  Receipt Date: 20250811
  Transmission Date: 20251020
  Serious: No
  Sender: STALLERGENES
  Company Number: US-STALCOR-2025-AER-00604

PATIENT
  Age: 17 Year
  Sex: Male

DRUGS (10)
  1. PALFORZIA [Suspect]
     Active Substance: PEANUT
     Indication: Food allergy
     Dosage: 3X1MG: LVL 1: UPDOSED AND TOLERATED WELL IN CLINIC ON 31-JAN-2025
     Route: 048
     Dates: start: 20250131
  2. PALFORZIA [Suspect]
     Active Substance: PEANUT
     Dosage: 3X1MG: LVL 1: REACTIVE DOSE AT ONSET OF REPORTED AE ON 25-FEB-2025
     Route: 048
     Dates: start: 20250225
  3. PALFORZIA [Suspect]
     Active Substance: PEANUT
     Dosage: TOLERATED 6MG IN CLINIC WITH TRANSIENT TINNITUS
     Route: 048
     Dates: start: 20250314
  4. PALFORZIA [Suspect]
     Active Substance: PEANUT
     Dosage: TOLERATED 12 MG PALFORZIA
     Route: 048
     Dates: start: 20250411
  5. PALFORZIA [Suspect]
     Active Substance: PEANUT
     Dosage: TOLERATED 20MG PLAFORZIA
     Route: 048
     Dates: start: 20250502
  6. ALBUTEROL SULFATE [Concomitant]
     Active Substance: ALBUTEROL SULFATE
     Indication: Product used for unknown indication
  7. BENADRYL [Concomitant]
     Active Substance: DIPHENHYDRAMINE HYDROCHLORIDE
     Indication: Product used for unknown indication
  8. LORATADINE [Concomitant]
     Active Substance: LORATADINE
     Indication: Product used for unknown indication
  9. FLUTICASONE [Concomitant]
     Active Substance: FLUTICASONE
     Indication: Product used for unknown indication
  10. ZYRTEC [Concomitant]
     Active Substance: CETIRIZINE HYDROCHLORIDE
     Indication: Product used for unknown indication

REACTIONS (2)
  - Tinnitus [Not Recovered/Not Resolved]
  - Condition aggravated [Not Recovered/Not Resolved]

NARRATIVE: CASE EVENT DATE: 20250225
